FAERS Safety Report 7563645-6 (Version None)
Quarter: 2011Q2

REPORT INFORMATION
  Report Type: 
  Country: None (occurrence: None)
  Receive Date: 20110622
  Receipt Date: 20110607
  Transmission Date: 20111010
  Serious: Yes (Death, Life-Threatening, Hospitalization)
  Sender: FDA-Public Use
  Company Number: US-ROCHE-725150

PATIENT
  Sex: Male
  Weight: 98.6 kg

DRUGS (5)
  1. BLINDED BEVACIZUMAB [Suspect]
     Dosage: DOSE GIVEN AT THE BEGINING OF WEEK 2,
     Route: 042
  2. TEMOZOLOMIDE [Suspect]
     Indication: GLIOBLASTOMA
     Route: 048
     Dates: start: 20100701
  3. BLINDED BEVACIZUMAB [Suspect]
     Indication: GLIOBLASTOMA
     Dosage: FREQUENCY: ON DAY 1 AND 15
     Route: 042
     Dates: start: 20100701
  4. BLINDED BEVACIZUMAB [Suspect]
     Dosage: LAST DOSE PRIOR TO SAE: 23 AUGUST 2010. FREQUENCY: DAY 1 OF WEEK 4 AND 6.
     Route: 042
     Dates: start: 20100823
  5. TEMOZOLOMIDE [Suspect]
     Dosage: DOSE: 150-200 MG/M2 ON DAYS 1-5, LAST DOSE PRIOR TO SAE: 12 AUGUST 2010. TOTAL DOSE: 6930 MG
     Route: 048

REACTIONS (3)
  - OPPORTUNISTIC INFECTION [None]
  - PNEUMONITIS [None]
  - CONVULSION [None]
